FAERS Safety Report 4953943-4 (Version None)
Quarter: 2006Q1

REPORT INFORMATION
  Report Type: 
  Country: None (occurrence: None)
  Receive Date: 20060327
  Receipt Date: 20060316
  Transmission Date: 20060701
  Serious: Yes (Death, Other)
  Sender: FDA-Public Use
  Company Number: US-JNJFOC-20031001770

PATIENT
  Age: 74 Year
  Sex: Male

DRUGS (2)
  1. DOXIL [Suspect]
     Route: 042
     Dates: start: 20010119, end: 20010119
  2. TOPOTECAN [Suspect]
     Dosage: 1.25 MG/M2 ON DAYS 1, 2, AND 3 OF A 28 DAY CYCLE
     Dates: start: 20010116, end: 20010118

REACTIONS (5)
  - DEATH [None]
  - HAEMATOCRIT DECREASED [None]
  - HAEMOGLOBIN DECREASED [None]
  - NEUTROPENIA [None]
  - THROMBOCYTOPENIA [None]
